FAERS Safety Report 7462737-X (Version None)
Quarter: 2011Q2

REPORT INFORMATION
  Report Type: 
  Country: None (occurrence: None)
  Receive Date: 20110506
  Receipt Date: 20110504
  Transmission Date: 20111010
  Serious: Yes (Death, Hospitalization, Other)
  Sender: FDA-Public Use
  Company Number: CA-ABBOTT-11P-028-0723689-00

PATIENT
  Sex: Male
  Weight: 81.72 kg

DRUGS (1)
  1. LUPRON DEPOT [Suspect]
     Indication: PROSTATE CANCER
     Route: 030
     Dates: start: 20100820, end: 20110218

REACTIONS (3)
  - BLOOD URINE PRESENT [None]
  - BONE CANCER METASTATIC [None]
  - CYSTITIS [None]
